FAERS Safety Report 6231245-6 (Version None)
Quarter: 2009Q2

REPORT INFORMATION
  Report Type: 
  Country: None (occurrence: None)
  Receive Date: 20090616
  Receipt Date: 20090603
  Transmission Date: 20091009
  Serious: Yes (Hospitalization, Other)
  Sender: FDA-Public Use
  Company Number: FR-ELI_LILLY_AND_COMPANY-FR200903003924

PATIENT
  Sex: Female
  Weight: 63 kg

DRUGS (9)
  1. FORTEO [Suspect]
     Indication: OSTEOPOROSIS
     Dosage: 20 UG, DAILY (1/D)
     Route: 058
     Dates: start: 20081021, end: 20090323
  2. FORTEO [Suspect]
     Dosage: 20 UG, DAILY (1/D)
     Route: 058
     Dates: start: 20090418
  3. MOPRAL [Concomitant]
     Dosage: UNK, UNKNOWN
     Route: 065
  4. ALDACTONE [Concomitant]
     Dosage: 75 MG, DAILY (1/D)
     Route: 065
  5. LASIX [Concomitant]
     Dosage: 40 MG, DAILY (1/D)
     Route: 065
  6. ZOLPIDEM TARTRATE [Concomitant]
     Dosage: 1 D/F, DAILY (1/D)
     Route: 065
  7. TENORMIN [Concomitant]
     Dosage: 0.5 D/F, DAILY (1/D)
     Route: 065
  8. LEVOTHYROXINE SODIUM [Concomitant]
     Dosage: 100 UG, DAILY (1/D)
     Route: 065
  9. CALTRATE +D [Concomitant]
     Dosage: UNK, UNKNOWN
     Route: 065

REACTIONS (4)
  - ARTERIOSCLEROSIS CORONARY ARTERY [None]
  - CARDIAC FAILURE [None]
  - HEART VALVE INCOMPETENCE [None]
  - PULMONARY OEDEMA [None]
